FAERS Safety Report 5022322-6 (Version None)
Quarter: 2006Q2

REPORT INFORMATION
  Report Type: 
  Country: None (occurrence: None)
  Receive Date: 20060605
  Receipt Date: 20060522
  Transmission Date: 20061013
  Serious: Yes (Hospitalization)
  Sender: FDA-Public Use
  Company Number: 2006066105

PATIENT
  Age: 65 Year
  Sex: Female

DRUGS (7)
  1. SILDENAFIL CITRATE [Suspect]
     Indication: CARDIAC DISORDER
     Dosage: 75 MG (25 MG, 3 IN 1 D), ORAL
     Route: 048
     Dates: start: 20060202, end: 20060323
  2. SILDENAFIL CITRATE [Suspect]
     Indication: LUNG DISORDER
     Dosage: 75 MG (25 MG, 3 IN 1 D), ORAL
     Route: 048
     Dates: start: 20060202, end: 20060323
  3. ENOXAPARIN SODIUM [Concomitant]
  4. ISOPTIN [Concomitant]
  5. NEXIUM [Concomitant]
  6. LEVOTHYROXINE SODIUM [Concomitant]
  7. FEMRA (LETR0ZOLE) [Concomitant]

REACTIONS (3)
  - DYSPHAGIA [None]
  - FACE OEDEMA [None]
  - VOCAL CORD PARESIS [None]
